FAERS Safety Report 11057952 (Version 1)
Quarter: 2015Q2

REPORT INFORMATION
  Report Type: Spontaneous
  Country: FR (occurrence: FR)
  Receive Date: 20150423
  Receipt Date: 20150423
  Transmission Date: 20150821
  Serious: Yes (Hospitalization)
  Sender: FDA-Public Use
  Company Number: FR-ROCHE-1567797

PATIENT
  Age: 7 Month
  Sex: Male
  Weight: 5.9 kg

DRUGS (2)
  1. LUCENTIS [Suspect]
     Active Substance: RANIBIZUMAB
     Indication: PRODUCT USED FOR UNKNOWN INDICATION
     Dosage: 10 MG/ML
     Route: 031
     Dates: start: 20141006
  2. LUCENTIS [Suspect]
     Active Substance: RANIBIZUMAB
     Dosage: IN EACH EYE
     Route: 031

REACTIONS (1)
  - Hepatoblastoma [Not Recovered/Not Resolved]

NARRATIVE: CASE EVENT DATE: 20150206
